FAERS Safety Report 16536021 (Version 1)
Quarter: 2019Q3

REPORT INFORMATION
  Report Type: Spontaneous
  Country: US (occurrence: US)
  Receive Date: 20190705
  Receipt Date: 20190705
  Transmission Date: 20191004
  Serious: No
  Sender: FDA-Public Use
  Company Number: US-009507513-1906USA004019

PATIENT
  Sex: Female

DRUGS (1)
  1. NEXPLANON [Suspect]
     Active Substance: ETONOGESTREL
     Dosage: 68 MILLIGRAM
     Route: 059

REACTIONS (4)
  - Weight increased [Not Recovered/Not Resolved]
  - Complication associated with device [Unknown]
  - Overweight [Not Recovered/Not Resolved]
  - Incorrect product administration duration [Unknown]
